FAERS Safety Report 11828360 (Version 1)
Quarter: 2015Q4

REPORT INFORMATION
  Report Type: Report from Study
  Country: NL (occurrence: NL)
  Receive Date: 20151211
  Receipt Date: 20151211
  Transmission Date: 20160305
  Serious: Yes (Other)
  Sender: FDA-Public Use
  Company Number: NL-ABBVIE-15P-114-1409171-00

PATIENT
  Sex: Female

DRUGS (2)
  1. CLOZAPINE. [Concomitant]
     Active Substance: CLOZAPINE
     Indication: PRODUCT USED FOR UNKNOWN INDICATION
     Route: 065
  2. DUODOPA [Suspect]
     Active Substance: CARBIDOPA\LEVODOPA
     Indication: PARKINSON^S DISEASE
     Dosage: SEE NARRATIVE
     Route: 050
     Dates: start: 20150504

REACTIONS (7)
  - Stoma site pain [Recovered/Resolved]
  - Abnormal behaviour [Unknown]
  - Fatigue [Unknown]
  - Hallucination [Not Recovered/Not Resolved]
  - Dyskinesia [Not Recovered/Not Resolved]
  - Pain [Not Recovered/Not Resolved]
  - On and off phenomenon [Not Recovered/Not Resolved]
